FAERS Safety Report 12463399 (Version 1)
Quarter: 2016Q2

REPORT INFORMATION
  Report Type: Report from Study
  Country: BR (occurrence: BR)
  Receive Date: 20160614
  Receipt Date: 20160614
  Transmission Date: 20160815
  Serious: Yes (Death, Hospitalization, Other)
  Sender: FDA-Public Use
  Company Number: PHHY2016BR080984

PATIENT
  Age: 66 Year
  Sex: Male
  Weight: 69 kg

DRUGS (1)
  1. EXFORGE HCT [Suspect]
     Active Substance: AMLODIPINE BESYLATE\HYDROCHLOROTHIAZIDE\VALSARTAN
     Indication: BLOOD PRESSURE ABNORMAL
     Dosage: 1 DF (AMLODIPINE 5 MG, HYDROCHLOROTHIAZIDE 12.5 MG, VALSARTAN 160 MG), QD
     Route: 048

REACTIONS (6)
  - Myocardial infarction [Unknown]
  - Venous thrombosis [Unknown]
  - Wound [Unknown]
  - Death [Fatal]
  - Pain [Unknown]
  - Necrosis [Unknown]

NARRATIVE: CASE EVENT DATE: 20151121
